FAERS Safety Report 20765312 (Version 11)
Quarter: 2023Q4

REPORT INFORMATION
  Report Type: Spontaneous
  Country: US (occurrence: US)
  Receive Date: 20220428
  Receipt Date: 20231115
  Transmission Date: 20240109
  Serious: No
  Sender: FDA-Public Use
  Company Number: US-SA-SAC20220422000590

PATIENT
  Age: 32 Year
  Sex: Female

DRUGS (2)
  1. DUPIXENT [Suspect]
     Active Substance: DUPILUMAB
     Indication: Dermatitis atopic
     Dosage: 600 MG, 1X
     Route: 058
     Dates: start: 202004, end: 202004
  2. DUPIXENT [Suspect]
     Active Substance: DUPILUMAB
     Dosage: 300 MG, QOW
     Route: 058
     Dates: start: 202204

REACTIONS (17)
  - Eczema [Unknown]
  - Erythema [Unknown]
  - Pruritus [Unknown]
  - Visual impairment [Unknown]
  - Photophobia [Unknown]
  - Movement disorder [Unknown]
  - Injection site haemorrhage [Unknown]
  - Nodule [Recovered/Resolved]
  - Pain in extremity [Unknown]
  - Ocular hyperaemia [Unknown]
  - Eye pruritus [Unknown]
  - Injection site reaction [Unknown]
  - Injection site pain [Unknown]
  - Injection site bruising [Recovered/Resolved]
  - Eye irritation [Unknown]
  - Injection site swelling [Unknown]
  - Lack of injection site rotation [Unknown]

NARRATIVE: CASE EVENT DATE: 20220419
